FAERS Safety Report 21851163 (Version 2)
Quarter: 2023Q1

REPORT INFORMATION
  Report Type: Other
  Country: US (occurrence: None)
  Receive Date: 20230112
  Receipt Date: 20230207
  Transmission Date: 20230418
  Serious: Yes (Other)
  Sender: FDA-Public Use
  Company Number: US-ROCHE-3257549

PATIENT
  Age: 51 Year
  Sex: Female

DRUGS (1)
  1. ENSPRYNG [Suspect]
     Active Substance: SATRALIZUMAB-MWGE
     Indication: Neuromyelitis optica spectrum disorder
     Dosage: 1ML UNDER THE SKIN ONCE MONTHLY.
     Route: 058
     Dates: start: 202108

REACTIONS (1)
  - Urinary tract infection [Not Recovered/Not Resolved]
